FAERS Safety Report 7320779-9 (Version None)
Quarter: 2011Q1

REPORT INFORMATION
  Report Type: 
  Country: None (occurrence: None)
  Receive Date: 20110228
  Receipt Date: 20110217
  Transmission Date: 20110831
  Serious: Yes (Hospitalization)
  Sender: FDA-Public Use
  Company Number: AT-ROCHE-755318

PATIENT
  Sex: Male
  Weight: 66 kg

DRUGS (4)
  1. FOLDINE [Concomitant]
     Dates: start: 20100823
  2. PEGINTERFERON ALFA-2A [Suspect]
     Dosage: LAST DOSE PRIOR TO SAE: 21 DECEMBER 2010.
     Route: 058
     Dates: start: 20100806
  3. RIBAVIRIN [Suspect]
     Dosage: LAST DOSE PRIOR TO SAE: 21 DECEMBER 2010.
     Route: 048
     Dates: start: 20100806
  4. MIRTABENE [Concomitant]
     Dates: start: 20101001

REACTIONS (1)
  - CRYOGLOBULINAEMIA [None]
